FAERS Safety Report 4507729-5 (Version None)
Quarter: 2004Q4

REPORT INFORMATION
  Report Type: 
  Country: None (occurrence: None)
  Receive Date: 20041015
  Receipt Date: 20040409
  Transmission Date: 20050328
  Serious: Yes (Other)
  Sender: FDA-Public Use
  Company Number: 2004024702

PATIENT
  Age: 72 Year
  Sex: Male
  Weight: 90.7194 kg

DRUGS (3)
  1. NEURONTIN [Suspect]
     Indication: PAIN
     Dosage: 1200 MG (BID), ORAL
     Route: 048
  2. LORAZEPAM [Concomitant]
  3. BUPROPION HYDROCHLORIDE [Concomitant]

REACTIONS (4)
  - FALL [None]
  - INSOMNIA [None]
  - PAIN EXACERBATED [None]
  - PATELLA FRACTURE [None]
